FAERS Safety Report 7680049-6 (Version None)
Quarter: 2011Q3

REPORT INFORMATION
  Report Type: 
  Country: None (occurrence: None)
  Receive Date: 20110812
  Receipt Date: 20110809
  Transmission Date: 20111222
  Serious: Yes (Other)
  Sender: FDA-Public Use
  Company Number: SE-ABBOTT-11P-150-0845365-00

PATIENT
  Age: 60 Year
  Sex: Female

DRUGS (1)
  1. VALPROATE SODIUM [Suspect]
     Indication: EPILEPSY
     Route: 065
     Dates: end: 20090902

REACTIONS (4)
  - BALANCE DISORDER [None]
  - AMNESIA [None]
  - CONFUSIONAL STATE [None]
  - DEMENTIA [None]
